FAERS Safety Report 7270191-6 (Version None)
Quarter: 2011Q1

REPORT INFORMATION
  Report Type: 
  Country: None (occurrence: None)
  Receive Date: 20110202
  Receipt Date: 20110121
  Transmission Date: 20110831
  Serious: Yes (Other)
  Sender: FDA-Public Use
  Company Number: US-ELI_LILLY_AND_COMPANY-US201101006050

PATIENT
  Age: 57 Year
  Sex: Female

DRUGS (5)
  1. CYMBALTA [Suspect]
     Indication: DEPRESSION
     Dosage: 90 MG, DAILY (1/D)
  2. HYDROCODONE [Concomitant]
  3. LYRICA [Concomitant]
  4. PROVIGIL [Concomitant]
  5. NEURONTIN [Concomitant]
     Dosage: 800 MG, UNK

REACTIONS (3)
  - MOTOR DYSFUNCTION [None]
  - MULTIPLE SCLEROSIS RELAPSE [None]
  - CRYING [None]
